FAERS Safety Report 7156403-8 (Version None)
Quarter: 2010Q4

REPORT INFORMATION
  Report Type: 
  Country: None (occurrence: None)
  Receive Date: 20101214
  Receipt Date: 20101201
  Transmission Date: 20110411
  Serious: Yes (Hospitalization)
  Sender: FDA-Public Use
  Company Number: AU-ROCHE-745826

PATIENT
  Sex: Female

DRUGS (6)
  1. TRASTUZUMAB [Suspect]
     Indication: BREAST CANCER
     Dosage: FREQUENCY REPORTED AS WEEKLY FOR 12 DOSES.
     Route: 042
     Dates: start: 20100108
  2. DOCETAXEL [Suspect]
     Indication: BREAST CANCER
     Dosage: FREQUENCY REPORTED AS THREE TIMES PER WEEK FOR 12 WEEKS.
     Route: 042
     Dates: start: 20100108
  3. ZOLPIDEM [Suspect]
     Route: 065
  4. ALPRAZOLAM [Suspect]
     Route: 065
  5. LAPATINIB [Suspect]
     Indication: BREAST CANCER
     Route: 048
     Dates: start: 20100514
  6. VENLAFAXINE HYDROCHLORIDE [Concomitant]

REACTIONS (2)
  - DEPRESSION [None]
  - OVERDOSE [None]
